FAERS Safety Report 9429074 (Version 1)
Quarter: 2013Q3

REPORT INFORMATION
  Report Type: Spontaneous
  Country: US (occurrence: US)
  Receive Date: 20130730
  Receipt Date: 20130730
  Transmission Date: 20140515
  Serious: No
  Sender: FDA-Public Use
  Company Number: US-009507513-1307USA016133

PATIENT
  Sex: Male

DRUGS (6)
  1. ZIOPTAN [Suspect]
     Indication: GLAUCOMA
     Dosage: 1 GTT, QD (ONE DROP IN EACH EYE ONCE A DAY)
     Route: 047
     Dates: start: 201301
  2. CRESTOR [Concomitant]
     Dosage: UNK
  3. SYNTHROID [Concomitant]
     Dosage: UNK
  4. ALPHAGAN [Concomitant]
     Dosage: UNK
  5. LOVASA [Concomitant]
     Dosage: UNK
  6. ASPIRIN [Concomitant]
     Dosage: UNK

REACTIONS (1)
  - Anaemia [Unknown]
